FAERS Safety Report 7336150-X (Version None)
Quarter: 2011Q1

REPORT INFORMATION
  Report Type: 
  Country: None (occurrence: None)
  Receive Date: 20110302
  Receipt Date: 20110302
  Transmission Date: 20110831
  Serious: Yes (Life-Threatening, Other)
  Sender: FDA-Public Use
  Company Number: None

PATIENT
  Age: 41 Year
  Sex: Male
  Weight: 75 kg

DRUGS (2)
  1. BUPROFEN SR 150 MG TWICE PER DAY [Suspect]
     Indication: DEPRESSION
     Dosage: 150 MG TWICE PER DAY
     Dates: start: 20110101, end: 20110204
  2. BUPROFEN SR 150 MG TWICE PER DAY [Suspect]
     Indication: ANXIETY
     Dosage: 150 MG TWICE PER DAY
     Dates: start: 20110101, end: 20110204

REACTIONS (4)
  - ANXIETY [None]
  - PRODUCT SUBSTITUTION ISSUE [None]
  - DEPRESSION [None]
  - SUICIDAL IDEATION [None]
